FAERS Safety Report 20882728 (Version 1)
Quarter: 2022Q2

REPORT INFORMATION
  Report Type: Spontaneous
  Country: US (occurrence: None)
  Receive Date: 20220526
  Receipt Date: 20220526
  Transmission Date: 20220721
  Serious: Yes (Hospitalization)
  Sender: FDA-Public Use
  Company Number: None

PATIENT
  Sex: Male
  Weight: 98.88 kg

DRUGS (19)
  1. ERLEADA [Suspect]
     Active Substance: APALUTAMIDE
     Indication: Prostate cancer
     Dosage: FREQUENCY : DAILY;?
     Route: 048
  2. ASPIRIN [Concomitant]
     Active Substance: ASPIRIN
  3. ATORVASTATIN [Concomitant]
  4. BRIMONIDINE [Concomitant]
     Active Substance: BRIMONIDINE TARTRATE
  5. CALCIUM ALGINATE-SILVER [Concomitant]
  6. CYANOCOBALAMIN [Concomitant]
     Active Substance: CYANOCOBALAMIN
  7. DOXAZOSIN [Concomitant]
     Active Substance: DOXAZOSIN MESYLATE
  8. FOLIC ACID [Concomitant]
     Active Substance: FOLIC ACID
  9. LACTULOSE [Concomitant]
     Active Substance: LACTULOSE
  10. LOSARTAN [Concomitant]
     Active Substance: LOSARTAN
  11. LUPRON [Concomitant]
     Active Substance: LEUPROLIDE ACETATE
  12. ALBUTEROL [Concomitant]
     Active Substance: ALBUTEROL
  13. ACETAMINOPHEN [Concomitant]
     Active Substance: ACETAMINOPHEN
  14. METOPROLOL [Concomitant]
     Active Substance: METOPROLOL
  15. VITAMINS [Concomitant]
     Active Substance: VITAMINS
  16. ZIOPTAN OP [Concomitant]
  17. PLAVIX [Concomitant]
     Active Substance: CLOPIDOGREL BISULFATE
  18. SENNA [Concomitant]
     Active Substance: SENNA LEAF\SENNOSIDES\SENNOSIDES A AND B
  19. ZOMETA [Concomitant]
     Active Substance: ZOLEDRONIC ACID

REACTIONS (2)
  - Unresponsive to stimuli [None]
  - Lethargy [None]
